FAERS Safety Report 9473773 (Version 1)
Quarter: 2013Q3

REPORT INFORMATION
  Report Type: Spontaneous
  Country: US (occurrence: US)
  Receive Date: 20130823
  Receipt Date: 20130823
  Transmission Date: 20140515
  Serious: No
  Sender: FDA-Public Use
  Company Number: US-BRISTOL-MYERS SQUIBB COMPANY-16970949

PATIENT
  Age: 63 Year
  Sex: Male
  Weight: 97.05 kg

DRUGS (2)
  1. SPRYCEL [Suspect]
     Indication: THYROID CANCER STAGE II
     Dosage: INT:21APR12?REST:1AUG12-10AUG12?DOSE INCREASED: 1TAB/DAY TO 2TAB/DAY(100MG).
     Route: 048
     Dates: start: 20120404
  2. AXITINIB [Suspect]

REACTIONS (2)
  - Headache [Unknown]
  - Nausea [Unknown]
